FAERS Safety Report 9377602 (Version 1)
Quarter: 2013Q3

REPORT INFORMATION
  Report Type: Spontaneous
  Country: DE (occurrence: DE)
  Receive Date: 20130701
  Receipt Date: 20130701
  Transmission Date: 20140515
  Serious: Yes (Other)
  Sender: FDA-Public Use
  Company Number: DE-PFIZER INC-2013188216

PATIENT
  Age: 54 Year
  Sex: Female

DRUGS (2)
  1. CIPROFLOXACIN [Suspect]
     Indication: STAPHYLOCOCCAL INFECTION
     Dosage: 500 MG, 2X/DAY
     Dates: start: 20130523, end: 20130603
  2. CLINDAMYCIN HCL [Suspect]
     Indication: STAPHYLOCOCCAL INFECTION
     Dosage: 600 MG, 2X/DAY
     Dates: start: 20130523, end: 20130527

REACTIONS (3)
  - Hypersensitivity vasculitis [Unknown]
  - Oedema peripheral [Unknown]
  - Petechiae [Unknown]
